FAERS Safety Report 6413605-3 (Version None)
Quarter: 2009Q4

REPORT INFORMATION
  Report Type: 
  Country: None (occurrence: None)
  Receive Date: 20091026
  Receipt Date: 20091021
  Transmission Date: 20100525
  Serious: Yes (Other)
  Sender: FDA-Public Use
  Company Number: JP-ABBOTT-09P-087-0595396-00

PATIENT
  Age: 17 Year
  Sex: Female

DRUGS (5)
  1. SEVOFLURANE [Suspect]
     Indication: ANAESTHESIA
     Dosage: 1.5-2.0%
  2. REMIFENTANIL [Suspect]
     Indication: ANAESTHESIA
     Dosage: 0.15 MCG X KG/MIN
  3. PROPOFOL [Concomitant]
     Indication: ANAESTHESIA
  4. VECURONIUM BROMIDE [Concomitant]
     Indication: ANAESTHESIA
  5. ATROPINE [Concomitant]
     Indication: ANAESTHESIA

REACTIONS (2)
  - BRADYCARDIA [None]
  - BUNDLE BRANCH BLOCK [None]
